FAERS Safety Report 15160211 (Version 1)
Quarter: 2018Q3

REPORT INFORMATION
  Report Type: Spontaneous
  Country: US (occurrence: US)
  Receive Date: 20180621
  Receipt Date: 20180621
  Transmission Date: 20181010
  Serious: No
  Sender: FDA-Public Use
  Company Number: None

PATIENT
  Age: 25 Year
  Sex: Female
  Weight: 129.73 kg

DRUGS (2)
  1. SMOFLIPID [Suspect]
     Active Substance: FISH OIL\MEDIUM-CHAIN TRIGLYCERIDES\OLIVE OIL\SOYBEAN OIL
     Indication: MELAS SYNDROME
     Route: 042
     Dates: start: 20180520
  2. SMOFLIPID [Suspect]
     Active Substance: FISH OIL\MEDIUM-CHAIN TRIGLYCERIDES\OLIVE OIL\SOYBEAN OIL
     Indication: HYPERTRIGLYCERIDAEMIA
     Route: 042
     Dates: start: 20180520

REACTIONS (5)
  - Pain in extremity [None]
  - Rash [None]
  - Burning sensation [None]
  - Skin discolouration [None]
  - Blister [None]

NARRATIVE: CASE EVENT DATE: 20180521
